FAERS Safety Report 4385202-5 (Version None)
Quarter: 2004Q2

REPORT INFORMATION
  Report Type: 
  Country: None (occurrence: None)
  Receive Date: 20040625
  Receipt Date: 20040617
  Transmission Date: 20050107
  Serious: Yes (Hospitalization)
  Sender: FDA-Public Use
  Company Number: AT-MERCK-0406AUT00026

PATIENT
  Sex: Female

DRUGS (2)
  1. INVANZ [Suspect]
     Indication: SEPSIS
     Route: 041
     Dates: start: 20040616, end: 20040601
  2. INVANZ [Suspect]
     Route: 041
     Dates: start: 20040601

REACTIONS (4)
  - DIARRHOEA [None]
  - HYPOVOLAEMIA [None]
  - PYREXIA [None]
  - TONIC CONVULSION [None]
